FAERS Safety Report 16770514 (Version 1)
Quarter: 2019Q3

REPORT INFORMATION
  Report Type: Report from Study
  Country: CN (occurrence: CN)
  Receive Date: 20190904
  Receipt Date: 20190904
  Transmission Date: 20191005
  Serious: Yes (Other)
  Sender: FDA-Public Use
  Company Number: CN-ROCHE-2389946

PATIENT

DRUGS (3)
  1. CHLORPHENAMINE MALEATE [Concomitant]
     Active Substance: CHLORPHENIRAMINE MALEATE
     Indication: ANTIALLERGIC THERAPY
     Route: 065
  2. RITUXIMAB. [Suspect]
     Active Substance: RITUXIMAB
     Indication: AUTOIMMUNE HAEMOLYTIC ANAEMIA
     Route: 041
  3. INDOMETACIN [Concomitant]
     Active Substance: INDOMETHACIN
     Indication: ANTIALLERGIC THERAPY
     Route: 048

REACTIONS (2)
  - Osteonecrosis [Unknown]
  - Infection [Recovering/Resolving]
